FAERS Safety Report 14564016 (Version 1)
Quarter: 2018Q1

REPORT INFORMATION
  Report Type: Spontaneous
  Country: US (occurrence: US)
  Receive Date: 20180222
  Receipt Date: 20180222
  Transmission Date: 20180509
  Serious: No
  Sender: FDA-Public Use
  Company Number: None

PATIENT
  Age: 57 Year
  Sex: Female
  Weight: 50.8 kg

DRUGS (1)
  1. BUPROPION SR 150MG [Suspect]
     Active Substance: BUPROPION
     Indication: ANXIETY
     Dates: start: 2008

REACTIONS (4)
  - Anxiety [None]
  - Therapy change [None]
  - Migraine [None]
  - Tremor [None]

NARRATIVE: CASE EVENT DATE: 2008
